FAERS Safety Report 12233540 (Version 1)
Quarter: 2016Q2

REPORT INFORMATION
  Report Type: Report from Study
  Country: US (occurrence: US)
  Receive Date: 20160404
  Receipt Date: 20160404
  Transmission Date: 20160815
  Serious: Yes (Other)
  Sender: FDA-Public Use
  Company Number: US-AMGEN-USASL2016039148

PATIENT
  Age: 65 Year
  Sex: Female

DRUGS (1)
  1. ENBREL [Suspect]
     Active Substance: ETANERCEPT
     Indication: RHEUMATOID ARTHRITIS
     Dosage: UNK
     Route: 065

REACTIONS (6)
  - Memory impairment [Unknown]
  - Gait disturbance [Unknown]
  - Hand deformity [Unknown]
  - Nodule [Unknown]
  - Spinal fusion surgery [Unknown]
  - Joint arthroplasty [Unknown]

NARRATIVE: CASE EVENT DATE: 20151215
